FAERS Safety Report 16441604 (Version 5)
Quarter: 2019Q3

REPORT INFORMATION
  Report Type: Spontaneous
  Country: MX (occurrence: MX)
  Receive Date: 20190617
  Receipt Date: 20190927
  Transmission Date: 20191004
  Serious: Yes (Hospitalization, Disabling)
  Sender: FDA-Public Use
  Company Number: MX-ANIPHARMA-2019-MX-000021

PATIENT
  Age: 94 Year
  Sex: Female
  Weight: 56 kg

DRUGS (9)
  1. ATACAND [Suspect]
     Active Substance: CANDESARTAN CILEXETIL
     Indication: HYPERTENSION
     Dosage: 16 MG DAILY
     Route: 048
     Dates: end: 20190626
  2. IVEL [Concomitant]
     Dosage: 250 MG DAILY
     Route: 048
     Dates: start: 201712
  3. ERDOSTEINE [Concomitant]
     Active Substance: ERDOSTEINE
     Dosage: UNK
     Route: 055
     Dates: start: 20190809
  4. METFORMIN [Concomitant]
     Active Substance: METFORMIN HYDROCHLORIDE
     Dosage: 850 MG DAILY
     Route: 048
     Dates: start: 201902, end: 201902
  5. NUTRISON [Concomitant]
     Active Substance: AMINO ACIDS\CARBOHYDRATES\MINERALS\SOYBEAN OIL\VITAMINS
     Dosage: 500 % TID
     Route: 065
  6. PULMICORT TURBUHALER [Suspect]
     Active Substance: BUDESONIDE
     Dosage: 3 NEBULIZATION PER DAY WITH 3 OR 4 UNITS PER NEBULIZATION / 1 NEBULIZATION PER DAY OF 3 OR 4 UNITS
     Route: 055
     Dates: end: 201905
  7. CARBIDOPA+LEVODOPA [Concomitant]
     Active Substance: CARBIDOPA\LEVODOPA
     Dosage: 250/25 MG/ DOSE: .25 DF TID
     Route: 048
     Dates: start: 20180425
  8. MOTILIUM [Concomitant]
     Active Substance: DOMPERIDONE
     Dosage: 10 MG TID
     Route: 048
     Dates: start: 20190521
  9. ATROVENT [Concomitant]
     Active Substance: IPRATROPIUM BROMIDE
     Dosage: UNK
     Route: 055

REACTIONS (26)
  - Productive cough [Unknown]
  - Diarrhoea [Not Recovered/Not Resolved]
  - Weight increased [Unknown]
  - Swollen tongue [Recovered/Resolved]
  - Dyskinesia [Recovered/Resolved]
  - Diabetic coma [Unknown]
  - Sputum retention [Unknown]
  - Humerus fracture [Recovered/Resolved]
  - Kidney infection [Unknown]
  - Fall [Recovered/Resolved]
  - Muscle atrophy [Not Recovered/Not Resolved]
  - Altered state of consciousness [Unknown]
  - Insomnia [Unknown]
  - Vomiting [Unknown]
  - Eye swelling [Recovered/Resolved]
  - Hyponatraemia [Recovered/Resolved]
  - Nausea [Unknown]
  - Gait inability [Recovered/Resolved with Sequelae]
  - Urinary tract infection [Unknown]
  - Posture abnormal [Unknown]
  - Dysphagia [Recovered/Resolved]
  - Feeling abnormal [Recovered/Resolved]
  - Product dose omission [Unknown]
  - Hypoaesthesia [Recovered/Resolved]
  - Dry mouth [Recovering/Resolving]
  - Somnolence [Recovering/Resolving]

NARRATIVE: CASE EVENT DATE: 201712
